FAERS Safety Report 23265385 (Version 2)
Quarter: 2025Q3

REPORT INFORMATION
  Report Type: Report from Study
  Country: CA (occurrence: CA)
  Receive Date: 20231206
  Receipt Date: 20250925
  Transmission Date: 20251021
  Serious: Yes (Other)
  Sender: SANDOZ
  Company Number: CA-SANDOZ-SDZ2023CA061748

PATIENT
  Sex: Female
  Weight: 63.039 kg

DRUGS (2)
  1. HYRIMOZ [Suspect]
     Active Substance: ADALIMUMAB-ADAZ
     Dosage: 40 MG, Q2W
     Route: 058
     Dates: start: 20211107
  2. HYRIMOZ [Suspect]
     Active Substance: ADALIMUMAB-ADAZ
     Indication: Crohn^s disease
     Dosage: 40 MG, BIW
     Route: 058
     Dates: start: 20220130

REACTIONS (4)
  - Pyoderma gangrenosum [Unknown]
  - Crohn^s disease [Unknown]
  - Uveitis [Unknown]
  - Arthritis enteropathic [Unknown]
